FAERS Safety Report 5877039-2 (Version None)
Quarter: 2008Q3

REPORT INFORMATION
  Report Type: 
  Country: None (occurrence: None)
  Receive Date: 20080909
  Receipt Date: 20080909
  Transmission Date: 20090109
  Serious: Yes (Life-Threatening)
  Sender: FDA-Public Use
  Company Number: None

PATIENT
  Age: 68 Year
  Sex: Male
  Weight: 97.977 kg

DRUGS (1)
  1. MORPHINE SULFATE ER 30MG WATSON [Suspect]
     Indication: HERPES ZOSTER
     Dosage: ONCE AT BEDTIME PO
     Route: 048

REACTIONS (1)
  - THERAPEUTIC RESPONSE DELAYED [None]
